FAERS Safety Report 9019790 (Version 1)
Quarter: 2013Q1

REPORT INFORMATION
  Report Type: Spontaneous
  Country: US (occurrence: US)
  Receive Date: 20130118
  Receipt Date: 20130118
  Transmission Date: 20140127
  Serious: No
  Sender: FDA-Public Use
  Company Number: US-B.I. PHARMACEUTICALS,INC./RIDGEFIELD-2013-BI-00187BP

PATIENT
  Age: 78 None
  Sex: Female

DRUGS (1)
  1. SPIRIVA [Suspect]
     Indication: CHRONIC OBSTRUCTIVE PULMONARY DISEASE
     Dosage: 18 MCG
     Route: 055
     Dates: start: 20120605

REACTIONS (4)
  - White blood cells urine [Recovered/Resolved]
  - Vaginal discharge [Recovered/Resolved]
  - Blood urine present [Recovered/Resolved]
  - Dysuria [Recovered/Resolved]
